FAERS Safety Report 7022299-8 (Version None)
Quarter: 2010Q3

REPORT INFORMATION
  Report Type: 
  Country: None (occurrence: None)
  Receive Date: 20100930
  Receipt Date: 20100921
  Transmission Date: 20110219
  Serious: Yes (Other)
  Sender: FDA-Public Use
  Company Number: JP-ASTRAZENECA-2010SE45241

PATIENT
  Age: 64 Year
  Sex: Male

DRUGS (7)
  1. BLOPRESS [Suspect]
     Indication: HYPERTENSION
     Route: 048
  2. FINIBAX [Concomitant]
     Route: 042
  3. VANCOMYCIN [Concomitant]
     Route: 065
  4. GASTER [Concomitant]
     Route: 065
  5. LOXONIN [Concomitant]
     Route: 065
  6. CLARITHROMYCIN [Concomitant]
     Route: 048
  7. METHYCOBAL [Concomitant]
     Route: 065

REACTIONS (1)
  - INTERSTITIAL LUNG DISEASE [None]
